FAERS Safety Report 14899642 (Version 1)
Quarter: 2018Q2

REPORT INFORMATION
  Report Type: Spontaneous
  Country: FR (occurrence: FR)
  Receive Date: 20180516
  Receipt Date: 20180516
  Transmission Date: 20180711
  Serious: Yes (Other)
  Sender: FDA-Public Use
  Company Number: FR-SUN PHARMACEUTICAL INDUSTRIES LTD-2018R1-172720

PATIENT
  Age: 20 Year
  Sex: Female
  Weight: 75 kg

DRUGS (2)
  1. CODEINE [Suspect]
     Active Substance: CODEINE
     Indication: TOXICITY TO VARIOUS AGENTS
     Dosage: 240 MG (SURDOSAGE VOLONTAIRE)
     Route: 048
     Dates: start: 20180407, end: 20180407
  2. PARACETAMOL [Suspect]
     Active Substance: ACETAMINOPHEN
     Indication: TOXICITY TO VARIOUS AGENTS
     Dosage: (SURDOSAGE VOLONTAIRE)
     Route: 048
     Dates: start: 20180407, end: 20180407

REACTIONS (2)
  - Analgesic drug level increased [Recovered/Resolved]
  - Somnolence [Recovered/Resolved]

NARRATIVE: CASE EVENT DATE: 20180407
